FAERS Safety Report 24740195 (Version 1)
Quarter: 2024Q4

REPORT INFORMATION
  Report Type: Spontaneous
  Country: US (occurrence: US)
  Receive Date: 20241216
  Receipt Date: 20241216
  Transmission Date: 20250115
  Serious: No
  Sender: BAUSCH AND LOMB
  Company Number: US-BAUSCH-BL-2024-018055

PATIENT
  Age: 89 Year
  Sex: Female

DRUGS (2)
  1. ALTRENO [Suspect]
     Active Substance: TRETINOIN
     Indication: Erythema
     Route: 061
  2. ALTRENO [Suspect]
     Active Substance: TRETINOIN
     Indication: Product use in unapproved indication

REACTIONS (4)
  - Rash macular [Unknown]
  - Rash papular [Unknown]
  - Product prescribing issue [Unknown]
  - Product use in unapproved indication [Unknown]
